FAERS Safety Report 15237927 (Version 1)
Quarter: 2018Q3

REPORT INFORMATION
  Report Type: Spontaneous
  Country: US (occurrence: US)
  Receive Date: 20180710
  Receipt Date: 20180710
  Transmission Date: 20181010
  Serious: Yes (Disabling)
  Sender: FDA-Public Use
  Company Number: None

PATIENT
  Age: 44 Year
  Sex: Female
  Weight: 47.25 kg

DRUGS (3)
  1. MULTIHANCE [Suspect]
     Active Substance: GADOBENATE DIMEGLUMINE
     Indication: NUCLEAR MAGNETIC RESONANCE IMAGING
     Route: 042
     Dates: start: 20161215, end: 20171227
  2. ASPIRIN. [Concomitant]
     Active Substance: ASPIRIN
  3. MULTIHANCE [Suspect]
     Active Substance: GADOBENATE DIMEGLUMINE
     Indication: SCAN WITH CONTRAST
     Route: 042
     Dates: start: 20161215, end: 20171227

REACTIONS (5)
  - Burning sensation [None]
  - Metal poisoning [None]
  - Bone pain [None]
  - Contrast media deposition [None]
  - Muscle twitching [None]

NARRATIVE: CASE EVENT DATE: 20180501
